FAERS Safety Report 15428286 (Version 1)
Quarter: 2018Q3

REPORT INFORMATION
  Report Type: Spontaneous
  Country: CA (occurrence: CA)
  Receive Date: 20180926
  Receipt Date: 20180926
  Transmission Date: 20181010
  Serious: Yes (Other)
  Sender: FDA-Public Use
  Company Number: CA-REGENERON PHARMACEUTICALS, INC.-2018-38267

PATIENT

DRUGS (2)
  1. EYLEA [Suspect]
     Active Substance: AFLIBERCEPT
     Dosage: 1 DF, ONCE (LAST INJECTION BEFORE EVENT)
     Route: 031
     Dates: start: 20180829, end: 20180829
  2. EYLEA [Suspect]
     Active Substance: AFLIBERCEPT
     Indication: NEOVASCULAR AGE-RELATED MACULAR DEGENERATION
     Dosage: 0.05 ML, UNK (OS ? EVERY 4?6 WEEKS)
     Route: 031

REACTIONS (4)
  - Injection site pain [Unknown]
  - Corneal oedema [Unknown]
  - Vision blurred [Unknown]
  - Superior corneal epithelial arcuate lesion [Unknown]

NARRATIVE: CASE EVENT DATE: 20180910
